FAERS Safety Report 24071422 (Version 1)
Quarter: 2024Q3

REPORT INFORMATION
  Report Type: Report from Study
  Country: AU (occurrence: AU)
  Receive Date: 20240710
  Receipt Date: 20240710
  Transmission Date: 20241016
  Serious: No
  Sender: ROCHE
  Company Number: AU-ROCHE-3174403

PATIENT
  Age: 63 Year
  Sex: Female
  Weight: 87.1 kg

DRUGS (16)
  1. ALECTINIB [Suspect]
     Active Substance: ALECTINIB
     Indication: Non-small cell lung cancer metastatic
     Route: 048
     Dates: start: 20211026
  2. COLOXYL TABLETS [Concomitant]
     Indication: Constipation
     Dosage: 2 TABLETS
     Route: 048
  3. OSTEOVIT-D [Concomitant]
     Indication: Vitamin D decreased
     Route: 048
     Dates: start: 202110
  4. MIRTAZAPINE [Concomitant]
     Active Substance: MIRTAZAPINE
     Indication: Depression
     Route: 048
  5. PROMENSIL [Concomitant]
     Indication: Night sweats
     Dosage: 285
     Route: 048
     Dates: start: 202110
  6. MAGNESIUM [Concomitant]
     Active Substance: MAGNESIUM
     Indication: Muscle spasms
     Dosage: 1 CAPSULE
     Route: 048
  7. TEMAZEPAM [Concomitant]
     Active Substance: TEMAZEPAM
     Dosage: SLEEP, 1 CAPSULE
     Route: 048
  8. KEFLEX [Concomitant]
     Active Substance: CEPHALEXIN
     Dosage: CAP/LRTI
     Route: 048
     Dates: start: 20220905, end: 20220910
  9. NEXIUM [Concomitant]
     Active Substance: ESOMEPRAZOLE MAGNESIUM
     Dosage: REFLUX
     Route: 048
     Dates: start: 20220203
  10. NASONEX [Concomitant]
     Active Substance: MOMETASONE FUROATE
     Indication: Rhinorrhoea
     Dosage: 1 SPRAY
     Route: 045
     Dates: start: 202207
  11. LYRICA [Concomitant]
     Active Substance: PREGABALIN
     Indication: Pain
     Route: 048
     Dates: start: 20191118
  12. ACETAMINOPHEN [Concomitant]
     Active Substance: ACETAMINOPHEN
     Indication: Back pain
     Route: 048
     Dates: start: 202211, end: 20221207
  13. ACETAMINOPHEN [Concomitant]
     Active Substance: ACETAMINOPHEN
     Indication: Arthralgia
     Route: 048
     Dates: start: 20220902, end: 20220919
  14. ACETAMINOPHEN [Concomitant]
     Active Substance: ACETAMINOPHEN
     Route: 048
  15. AMOXICILLIN\CLAVULANATE POTASSIUM [Concomitant]
     Active Substance: AMOXICILLIN\CLAVULANATE POTASSIUM
     Dosage: CAP-RUZ
     Route: 048
     Dates: start: 20221207, end: 20221216
  16. NALOXONE HYDROCHLORIDE\OXYCODONE HYDROCHLORIDE [Concomitant]
     Active Substance: NALOXONE HYDROCHLORIDE\OXYCODONE HYDROCHLORIDE
     Indication: Pain
     Route: 048
     Dates: start: 20191118

REACTIONS (2)
  - Fall [Unknown]
  - Headache [Recovered/Resolved]

NARRATIVE: CASE EVENT DATE: 20220902
